FAERS Safety Report 7217578-5 (Version None)
Quarter: 2011Q1

REPORT INFORMATION
  Report Type: 
  Country: None (occurrence: None)
  Receive Date: 20110110
  Receipt Date: 20101222
  Transmission Date: 20110831
  Serious: Yes (Hospitalization, Other)
  Sender: FDA-Public Use
  Company Number: US-ROCHE-687974

PATIENT
  Sex: Male
  Weight: 75.3 kg

DRUGS (23)
  1. PEGINTERFERON ALFA-2A [Suspect]
     Dosage: WEEK 55
     Route: 065
  2. LEXAPRO [Suspect]
     Route: 048
  3. COMBIVENT [Concomitant]
  4. OXYCODONE [Concomitant]
  5. PEGINTERFERON ALFA-2A [Suspect]
     Route: 065
  6. FENTANYL-100 [Concomitant]
  7. PEGINTERFERON ALFA-2A [Suspect]
     Dosage: PATIENT IN WEEK 30 OF TREATMENT
     Route: 065
  8. LYRICA [Concomitant]
  9. OXYCODONE [Concomitant]
  10. TRAZODONE [Concomitant]
     Indication: BIPOLAR DISORDER
     Dosage: FREQUENCY: AT BED TIME
  11. PEGINTERFERON ALFA-2A [Suspect]
     Route: 065
  12. ADVAIR [Concomitant]
  13. SKELAXIN [Concomitant]
  14. RIBAVARIN [Suspect]
     Dosage: DOSAGE REDUCED. IN DIVIDED DOSES; WEEK 55
     Route: 065
  15. FLUTICASONE PROPIONATE [Concomitant]
  16. LISINOPRIL [Concomitant]
     Indication: HYPERTENSION
  17. PEGINTERFERON ALFA-2A [Suspect]
     Indication: HEPATITIS C
     Dosage: FORM: PRE-FILLED SYRINGE;
     Route: 065
     Dates: start: 20090920
  18. PEGINTERFERON ALFA-2A [Suspect]
     Dosage: WEEK 33
     Route: 065
  19. VITAMIN B-12 [Concomitant]
  20. LAMOTRIGINE [Concomitant]
     Dosage: FREQUENCY: AT BEDTIME
  21. MORPHINE [Concomitant]
  22. RIBAVARIN [Suspect]
     Indication: HEPATITIS C
     Dosage: NOTE: DIVIDED DOSES; PATIENT RECEIVED RIBASPHERE AND RIBAVIRIN (PAR)
     Route: 065
     Dates: start: 20090920
  23. PROMETHAZINE [Concomitant]

REACTIONS (13)
  - BRONCHITIS [None]
  - DECREASED APPETITE [None]
  - INFECTION [None]
  - VASCULAR STENT INSERTION [None]
  - EXOSTOSIS [None]
  - CONSTIPATION [None]
  - HAEMORRHAGE [None]
  - OEDEMA PERIPHERAL [None]
  - DYSPNOEA [None]
  - NERVE INJURY [None]
  - WHITE BLOOD CELL COUNT DECREASED [None]
  - ANAEMIA [None]
  - OBSTRUCTION [None]
